FAERS Safety Report 14185526 (Version 6)
Quarter: 2018Q4

REPORT INFORMATION
  Report Type: Report from Study
  Country: JP (occurrence: JP)
  Receive Date: 20171114
  Receipt Date: 20181010
  Transmission Date: 20190204
  Serious: Yes (Hospitalization)
  Sender: FDA-Public Use
  Company Number: JP-JNJFOC-20171105048

PATIENT
  Age: 70 Year
  Sex: Male
  Weight: 79 kg

DRUGS (35)
  1. ZYTIGA [Suspect]
     Active Substance: ABIRATERONE ACETATE
     Indication: HORMONE-REFRACTORY PROSTATE CANCER
     Route: 048
     Dates: start: 20161102, end: 20171030
  2. PREDNISOLONE. [Suspect]
     Active Substance: PREDNISOLONE
     Indication: HORMONE-REFRACTORY PROSTATE CANCER
     Route: 048
     Dates: start: 20160120, end: 20160126
  3. PREDNISOLONE. [Suspect]
     Active Substance: PREDNISOLONE
     Indication: HORMONE-REFRACTORY PROSTATE CANCER
     Route: 048
     Dates: start: 20160203, end: 20160909
  4. PREDNISOLONE. [Suspect]
     Active Substance: PREDNISOLONE
     Indication: HYPERGLYCAEMIA
     Route: 048
     Dates: start: 20160910, end: 20161004
  5. ZYTIGA [Suspect]
     Active Substance: ABIRATERONE ACETATE
     Indication: HORMONE-REFRACTORY PROSTATE CANCER
     Route: 048
     Dates: start: 20151202, end: 20151227
  6. PREDNISOLONE. [Suspect]
     Active Substance: PREDNISOLONE
     Indication: HORMONE-REFRACTORY PROSTATE CANCER
     Route: 048
     Dates: start: 20160113, end: 20160119
  7. BENZBROMARONE [Concomitant]
     Active Substance: BENZBROMARONE
     Indication: GOUT
     Route: 048
     Dates: start: 20160406
  8. ZOLADEX [Concomitant]
     Active Substance: GOSERELIN ACETATE
     Indication: HORMONE-REFRACTORY PROSTATE CANCER
     Route: 058
     Dates: start: 20151028
  9. PREDNISOLONE. [Suspect]
     Active Substance: PREDNISOLONE
     Indication: HYPERGLYCAEMIA
     Route: 048
     Dates: start: 20161102, end: 20171030
  10. JANUVIA [Concomitant]
     Active Substance: SITAGLIPTIN PHOSPHATE
     Indication: HYPERGLYCAEMIA
     Route: 048
     Dates: start: 20160421
  11. LOXOPROFEN NA [Concomitant]
     Active Substance: LOXOPROFEN SODIUM
     Route: 048
     Dates: start: 20170910, end: 20170925
  12. PROPOFOL. [Concomitant]
     Active Substance: PROPOFOL
     Indication: VASCULAR CATHETERISATION
     Route: 042
     Dates: start: 20161020, end: 20161020
  13. PREDNISOLONE. [Suspect]
     Active Substance: PREDNISOLONE
     Indication: HYPERGLYCAEMIA
     Route: 048
     Dates: start: 20160113, end: 20160119
  14. PREDNISOLONE. [Suspect]
     Active Substance: PREDNISOLONE
     Indication: HORMONE-REFRACTORY PROSTATE CANCER
     Route: 048
     Dates: start: 20161102, end: 20171030
  15. PREDNISOLONE. [Suspect]
     Active Substance: PREDNISOLONE
     Indication: HYPERGLYCAEMIA
     Route: 048
     Dates: start: 20171102, end: 20171231
  16. GLIMEPIRIDE. [Concomitant]
     Active Substance: GLIMEPIRIDE
     Indication: DIABETES MELLITUS
     Route: 048
     Dates: start: 1990
  17. FORXIGA [Concomitant]
     Active Substance: DAPAGLIFLOZIN
     Indication: DIABETES MELLITUS
     Route: 048
     Dates: start: 20160406
  18. JANUVIA [Concomitant]
     Active Substance: SITAGLIPTIN PHOSPHATE
     Indication: HYPERGLYCAEMIA
     Route: 048
     Dates: start: 20160127, end: 20160420
  19. EDIROL [Concomitant]
     Active Substance: ELDECALCITOL
     Indication: PROPHYLAXIS
     Route: 048
     Dates: start: 20141004, end: 20171030
  20. NEOJODIN [Concomitant]
     Indication: INFECTION PROPHYLAXIS
     Route: 061
     Dates: start: 20161020
  21. PREDNISOLONE. [Suspect]
     Active Substance: PREDNISOLONE
     Indication: HYPERGLYCAEMIA
     Route: 048
     Dates: start: 20151202, end: 20160112
  22. ZOLADEX [Concomitant]
     Active Substance: GOSERELIN ACETATE
     Indication: HORMONE-REFRACTORY PROSTATE CANCER
     Route: 058
     Dates: start: 20170419
  23. PENTAZOCINE [Concomitant]
     Active Substance: PENTAZOCINE
     Indication: VASCULAR CATHETERISATION
     Route: 042
     Dates: start: 20161020, end: 20161020
  24. ZYTIGA [Suspect]
     Active Substance: ABIRATERONE ACETATE
     Indication: HORMONE-REFRACTORY PROSTATE CANCER
     Route: 048
     Dates: start: 20160203, end: 20160909
  25. ZYTIGA [Suspect]
     Active Substance: ABIRATERONE ACETATE
     Indication: HORMONE-REFRACTORY PROSTATE CANCER
     Route: 048
     Dates: start: 20171102, end: 20171231
  26. PREDNISOLONE. [Suspect]
     Active Substance: PREDNISOLONE
     Indication: HORMONE-REFRACTORY PROSTATE CANCER
     Route: 048
     Dates: start: 20160910, end: 20161004
  27. PREDNISOLONE. [Suspect]
     Active Substance: PREDNISOLONE
     Indication: HORMONE-REFRACTORY PROSTATE CANCER
     Route: 048
     Dates: start: 20171102, end: 20171231
  28. JANUVIA [Concomitant]
     Active Substance: SITAGLIPTIN PHOSPHATE
     Indication: DIABETES MELLITUS
     Route: 048
     Dates: start: 20160127, end: 20160420
  29. MIGLITOL. [Concomitant]
     Active Substance: MIGLITOL
     Indication: DIABETES MELLITUS
     Route: 048
     Dates: start: 20170703
  30. PREDNISOLONE. [Suspect]
     Active Substance: PREDNISOLONE
     Indication: HORMONE-REFRACTORY PROSTATE CANCER
     Route: 048
     Dates: start: 20151202, end: 20160112
  31. PREDNISOLONE. [Suspect]
     Active Substance: PREDNISOLONE
     Indication: HYPERGLYCAEMIA
     Route: 048
     Dates: start: 20160120, end: 20160126
  32. PREDNISOLONE. [Suspect]
     Active Substance: PREDNISOLONE
     Indication: HYPERGLYCAEMIA
     Route: 048
     Dates: start: 20160203, end: 20160909
  33. PITAVASTATIN CALCIUM [Concomitant]
     Active Substance: PITAVASTATIN CALCIUM
     Indication: HYPERLIPIDAEMIA
     Route: 048
     Dates: start: 1990
  34. URSODEOXYCHOLIC ACID [Concomitant]
     Active Substance: URSODIOL
     Indication: PROPHYLAXIS
     Route: 048
     Dates: start: 20160421
  35. JANUVIA [Concomitant]
     Active Substance: SITAGLIPTIN PHOSPHATE
     Indication: DIABETES MELLITUS
     Route: 048
     Dates: start: 20160421

REACTIONS (3)
  - Renal impairment [Recovered/Resolved]
  - Arthritis [Recovered/Resolved]
  - Hypercalcaemia [Recovered/Resolved]

NARRATIVE: CASE EVENT DATE: 20170918
